FAERS Safety Report 11596959 (Version 1)
Quarter: 2015Q4

REPORT INFORMATION
  Report Type: Spontaneous
  Country: DE (occurrence: DE)
  Receive Date: 20151006
  Receipt Date: 20151006
  Transmission Date: 20160304
  Serious: Yes (Other)
  Sender: FDA-Public Use
  Company Number: GXKR2015DE004490

PATIENT
  Age: 81 Year
  Sex: Female

DRUGS (1)
  1. METOPROLOLSUCCINAT 1A PHARMA [Suspect]
     Active Substance: METOPROLOL SUCCINATE
     Indication: HYPERTENSION
     Dosage: UNK MG, UNK
     Route: 048
     Dates: start: 2013

REACTIONS (1)
  - Renal impairment [Unknown]
